FAERS Safety Report 17898921 (Version 7)
Quarter: 2020Q4

REPORT INFORMATION
  Report Type: Report from Study
  Country: US (occurrence: US)
  Receive Date: 20200615
  Receipt Date: 20201009
  Transmission Date: 20210113
  Serious: Yes (Other)
  Sender: FDA-Public Use
  Company Number: US-GLAXOSMITHKLINE-US2020AMR079349

PATIENT
  Sex: Female

DRUGS (3)
  1. NIRAPARIB [Suspect]
     Active Substance: NIRAPARIB
     Dosage: 100 MG, QD, 100MG-OUR PHARMACY
     Dates: start: 20200416
  2. NIRAPARIB [Suspect]
     Active Substance: NIRAPARIB
     Indication: OVARIAN CANCER
     Dosage: 100 MG, QD, OTHER SOURCE-OFF LABEL
     Dates: start: 202001
  3. NIRAPARIB [Suspect]
     Active Substance: NIRAPARIB
     Dosage: 200 MG, QD
     Dates: start: 20200729

REACTIONS (16)
  - Neuropathy peripheral [Unknown]
  - Joint swelling [Recovered/Resolved]
  - Weight increased [Unknown]
  - Haemoglobin decreased [Unknown]
  - Off label use [Unknown]
  - Constipation [Recovering/Resolving]
  - Dysgeusia [Not Recovered/Not Resolved]
  - Memory impairment [Unknown]
  - Computerised tomogram abnormal [Unknown]
  - Nausea [Unknown]
  - Fatigue [Unknown]
  - Decreased activity [Unknown]
  - Sleep disorder [Not Recovered/Not Resolved]
  - Muscle spasms [Recovered/Resolved]
  - Product dose omission issue [Unknown]
  - Confusional state [Unknown]
